FAERS Safety Report 19062244 (Version 1)
Quarter: 2021Q1

REPORT INFORMATION
  Report Type: Spontaneous
  Country: US (occurrence: US)
  Receive Date: 20210326
  Receipt Date: 20210326
  Transmission Date: 20210420
  Serious: Yes (Hospitalization, Other)
  Sender: FDA-Public Use
  Company Number: US-ASTELLAS-2021US010989

PATIENT
  Age: 23 Year
  Sex: Female

DRUGS (3)
  1. PREDNISONE. [Concomitant]
     Active Substance: PREDNISONE
     Route: 048
  2. TACROLIMUS. [Suspect]
     Active Substance: TACROLIMUS
     Indication: LUNG TRANSPLANT
     Dosage: 0.5 MG, ONCE DAILY
     Route: 065
  3. PREDNISONE. [Concomitant]
     Active Substance: PREDNISONE
     Indication: LUNG TRANSPLANT
     Route: 048

REACTIONS (5)
  - Optic neuropathy [Unknown]
  - Acute kidney injury [Recovered/Resolved]
  - Immunosuppressant drug level increased [Unknown]
  - Posterior reversible encephalopathy syndrome [Recovering/Resolving]
  - Toxicity to various agents [Recovered/Resolved]
